FAERS Safety Report 6886793-2 (Version None)
Quarter: 2010Q3

REPORT INFORMATION
  Report Type: 
  Country: None (occurrence: None)
  Receive Date: 20100730
  Receipt Date: 20100720
  Transmission Date: 20110219
  Serious: Yes (Other)
  Sender: FDA-Public Use
  Company Number: US-PFIZER INC-2010075579

PATIENT
  Sex: Male
  Weight: 81 kg

DRUGS (6)
  1. XALATAN [Suspect]
     Indication: GLAUCOMA
     Dosage: ONE DROP EACH EYE DAILY
     Route: 047
     Dates: start: 20050101
  2. COMBIVENT [Concomitant]
     Indication: RESPIRATORY DISORDER
     Dosage: UNK
  3. THEOPHYLLINE [Concomitant]
     Indication: RESPIRATORY DISORDER
     Dosage: UNK
  4. DILTIAZEM [Concomitant]
     Indication: BLOOD PRESSURE INCREASED
     Dosage: UNK
  5. NEXIUM [Concomitant]
     Indication: GASTRIC DISORDER
     Dosage: UNK
  6. MONTELUKAST [Concomitant]
     Indication: RESPIRATORY DISORDER
     Dosage: UNK

REACTIONS (1)
  - CATARACT [None]
